FAERS Safety Report 15593727 (Version 1)
Quarter: 2018Q4

REPORT INFORMATION
  Report Type: Spontaneous
  Country: US (occurrence: US)
  Receive Date: 20181107
  Receipt Date: 20181107
  Transmission Date: 20190205
  Serious: No
  Sender: FDA-Public Use
  Company Number: None

PATIENT
  Sex: Male

DRUGS (2)
  1. FINASTERIDE. [Suspect]
     Active Substance: FINASTERIDE
  2. FLOMAX [Suspect]
     Active Substance: TAMSULOSIN HYDROCHLORIDE

REACTIONS (1)
  - Treatment failure [None]
